FAERS Safety Report 7676133-3 (Version None)
Quarter: 2011Q3

REPORT INFORMATION
  Report Type: 
  Country: None (occurrence: None)
  Receive Date: 20110805
  Receipt Date: 20110721
  Transmission Date: 20111222
  Serious: Yes (Hospitalization)
  Sender: FDA-Public Use
  Company Number: 2011MA009251

PATIENT

DRUGS (1)
  1. RISPERIDONE [Suspect]
     Indication: PSYCHOTIC DISORDER

REACTIONS (2)
  - COGWHEEL RIGIDITY [None]
  - EXTRAPYRAMIDAL DISORDER [None]
